FAERS Safety Report 9550360 (Version 2)
Quarter: 2014Q2

REPORT INFORMATION
  Report Type: Spontaneous
  Country: US (occurrence: US)
  Receive Date: 20130924
  Receipt Date: 20140402
  Transmission Date: 20141212
  Serious: No
  Sender: FDA-Public Use
  Company Number: US-SANOFI-AVENTIS-2013SA087574

PATIENT
  Age: 50 Year
  Sex: Female

DRUGS (3)
  1. AUBAGIO [Suspect]
     Indication: MULTIPLE SCLEROSIS
     Route: 048
     Dates: start: 20130409, end: 201308
  2. SYNTHROID [Concomitant]
  3. NOVOLOG [Concomitant]
     Dosage: DOSE:1030 UNIT(S)

REACTIONS (1)
  - Adverse reaction [Unknown]
